FAERS Safety Report 25497062 (Version 1)
Quarter: 2025Q3

REPORT INFORMATION
  Report Type: Spontaneous
  Country: US (occurrence: US)
  Receive Date: 20250701
  Receipt Date: 20250701
  Transmission Date: 20251021
  Serious: No
  Sender: STRIDES
  Company Number: US-STRIDES ARCOLAB LIMITED-2025SP004410

PATIENT
  Age: 59 Year
  Sex: Female

DRUGS (16)
  1. ATORVASTATIN CALCIUM [Interacting]
     Active Substance: ATORVASTATIN CALCIUM
     Indication: Cardiovascular event prophylaxis
     Route: 065
  2. ATORVASTATIN CALCIUM [Interacting]
     Active Substance: ATORVASTATIN CALCIUM
     Route: 065
  3. ATORVASTATIN CALCIUM [Interacting]
     Active Substance: ATORVASTATIN CALCIUM
     Route: 065
  4. LORLATINIB [Interacting]
     Active Substance: LORLATINIB
     Indication: Metastasis
     Route: 065
  5. LORLATINIB [Interacting]
     Active Substance: LORLATINIB
     Indication: Non-small cell lung cancer stage IV
     Route: 065
  6. EZETIMIBE [Suspect]
     Active Substance: EZETIMIBE
     Indication: Dyslipidaemia
     Route: 065
  7. CISPLATIN [Concomitant]
     Active Substance: CISPLATIN
     Indication: Non-small cell lung cancer
     Route: 065
  8. PEMETREXED [Concomitant]
     Active Substance: PEMETREXED
     Indication: Non-small cell lung cancer
     Route: 065
  9. CARBOPLATIN [Concomitant]
     Active Substance: CARBOPLATIN
     Indication: Metastatic neoplasm
     Route: 065
  10. CARBOPLATIN [Concomitant]
     Active Substance: CARBOPLATIN
     Indication: Non-small cell lung cancer stage IV
  11. TAXOL [Concomitant]
     Active Substance: PACLITAXEL
     Indication: Metastatic neoplasm
     Route: 065
  12. TAXOL [Concomitant]
     Active Substance: PACLITAXEL
     Indication: Non-small cell lung cancer stage IV
  13. CRIZOTINIB [Concomitant]
     Active Substance: CRIZOTINIB
     Indication: Metastatic neoplasm
     Route: 065
  14. CRIZOTINIB [Concomitant]
     Active Substance: CRIZOTINIB
     Indication: Non-small cell lung cancer stage IV
  15. ENTRECTINIB [Concomitant]
     Active Substance: ENTRECTINIB
     Indication: Metastatic neoplasm
     Route: 065
  16. ENTRECTINIB [Concomitant]
     Active Substance: ENTRECTINIB
     Indication: Non-small cell lung cancer stage IV

REACTIONS (2)
  - Drug interaction [Unknown]
  - Drug ineffective [Unknown]
